FAERS Safety Report 7212756-3 (Version None)
Quarter: 2010Q4

REPORT INFORMATION
  Report Type: 
  Country: None (occurrence: None)
  Receive Date: 20101229
  Receipt Date: 20101214
  Transmission Date: 20110411
  Serious: Yes (Other)
  Sender: FDA-Public Use
  Company Number: AUR-APU-2010-03141

PATIENT
  Sex: Female

DRUGS (2)
  1. CITALOPRAM HYDROBROMIDE [Suspect]
     Dosage: 40MG
  2. DEPO ANTIPSYCHOTIC [Suspect]

REACTIONS (2)
  - DYSTONIA [None]
  - MASKED FACIES [None]
